FAERS Safety Report 23830764 (Version 1)
Quarter: 2024Q2

REPORT INFORMATION
  Report Type: Spontaneous
  Country: DE (occurrence: DE)
  Receive Date: 20240508
  Receipt Date: 20240508
  Transmission Date: 20240716
  Serious: Yes (Other)
  Sender: FDA-Public Use
  Company Number: DE-LUNDBECK-DKLU1035182

PATIENT
  Age: 40 Year
  Sex: Female
  Weight: 64 kg

DRUGS (5)
  1. DOXYCYCLINE HYCLATE [Suspect]
     Active Substance: DOXYCYCLINE HYCLATE
     Dosage: 20 DF, OVERDOSE: 2000 MG AT MOST
     Route: 048
     Dates: start: 20081126, end: 20081126
  2. CIPRALEX [Suspect]
     Active Substance: ESCITALOPRAM OXALATE
     Dosage: 10 DF, 1X/DAY, OVERDOSE: 100 MG AT MOST
     Route: 048
     Dates: start: 20081126, end: 20081126
  3. ACETAMINOPHEN [Suspect]
     Active Substance: ACETAMINOPHEN
     Dosage: 10 DF, 1X/DAY, OVERDOSE: 5000 MG AT MOST
     Route: 048
     Dates: start: 20081126, end: 20081126
  4. TETRAZEPAM [Suspect]
     Active Substance: TETRAZEPAM
     Dosage: 50 DF, 1X/DAY, OVERDOSE: 2500 MG AT MOST
     Route: 048
     Dates: start: 20081126, end: 20081126
  5. ALCOHOL [Suspect]
     Active Substance: ALCOHOL
     Dosage: UNK, HALF A BOTTLE OF HARD LIQUOR
     Route: 048
     Dates: start: 20081126, end: 20081126

REACTIONS (5)
  - Suicide attempt [Unknown]
  - Alcohol poisoning [Unknown]
  - Tachycardia [Unknown]
  - Somnolence [Unknown]
  - Intentional overdose [Unknown]

NARRATIVE: CASE EVENT DATE: 20081126
